FAERS Safety Report 17082849 (Version 8)
Quarter: 2022Q3

REPORT INFORMATION
  Report Type: Spontaneous
  Country: US (occurrence: US)
  Receive Date: 20191127
  Receipt Date: 20220808
  Transmission Date: 20221027
  Serious: Yes (Life-Threatening, Hospitalization, Other)
  Sender: FDA-Public Use
  Company Number: US-MLMSERVICE-20191118-2046167-1

PATIENT
  Age: 20 Year
  Sex: Female

DRUGS (18)
  1. THYMOCYTE IMMUNE GLOBULIN NOS [Suspect]
     Active Substance: THYMOCYTE IMMUNE GLOBULIN NOS
     Indication: Prophylaxis against transplant rejection
     Dosage: 1 MG/KG/DOSE (INFUSION)
     Dates: start: 2017
  2. THYMOCYTE IMMUNE GLOBULIN NOS [Suspect]
     Active Substance: THYMOCYTE IMMUNE GLOBULIN NOS
     Dosage: 2 MG/KG, 1X/DAY (INFUSION)
     Dates: start: 2017
  3. SIROLIMUS [Suspect]
     Active Substance: SIROLIMUS
     Indication: Prophylaxis against transplant rejection
     Dosage: UNK
     Dates: start: 2017
  4. TACROLIMUS [Suspect]
     Active Substance: TACROLIMUS
     Indication: Prophylaxis against transplant rejection
     Dosage: UNK
     Dates: start: 2004
  5. TACROLIMUS [Suspect]
     Active Substance: TACROLIMUS
     Indication: Immunosuppressant drug therapy
     Dosage: UNK (ADJUSTMENT OF TACROLIMUS DOSE TO TARGET TROUGH LEVELS BETWEEN 10 AND 15 NG/ML)
     Dates: start: 2017
  6. TACROLIMUS [Suspect]
     Active Substance: TACROLIMUS
     Dosage: 1 MG, 2X/DAY (EVERY 12 HOURS)
     Dates: end: 2017
  7. TACROLIMUS [Suspect]
     Active Substance: TACROLIMUS
     Dosage: UNK (REDUCED WITH TARGET TACROLIMUS TROUGHS OF 4 TO 5 NG/ML)
  8. TACROLIMUS [Suspect]
     Active Substance: TACROLIMUS
     Dosage: UNK (INCREASED)
  9. INFLIXIMAB [Suspect]
     Active Substance: INFLIXIMAB
     Indication: Prophylaxis against transplant rejection
     Dosage: 5 MG/KG, CYCLIC (SINGLE DOSES OF INFLIXIMAB)
  10. INFLIXIMAB [Suspect]
     Active Substance: INFLIXIMAB
     Dosage: 5 MG/KG, CYCLIC (SINGLE INFUSION)
     Dates: start: 2017
  11. INFLIXIMAB [Suspect]
     Active Substance: INFLIXIMAB
     Dosage: 10 MG/KG, UNK (INFUSIONS), (PLAN TO REPEAT THIS EVERY 4 TO 6 WEEKS)
  12. PREDNISONE [Suspect]
     Active Substance: PREDNISONE
     Indication: Immunosuppressant drug therapy
     Dosage: 10MG/KG, DAILY
     Route: 042
  13. PREDNISONE [Suspect]
     Active Substance: PREDNISONE
     Indication: Prophylaxis against transplant rejection
     Dosage: 5 MG/KG, DAILY  (ONCE DAILY)
     Route: 042
  14. PREDNISONE [Suspect]
     Active Substance: PREDNISONE
     Dosage: 4 MG/KG, DAILY
     Route: 042
  15. PREDNISONE [Suspect]
     Active Substance: PREDNISONE
     Dosage: 3 MG/KG, DAILY
     Route: 042
  16. PREDNISONE [Suspect]
     Active Substance: PREDNISONE
     Dosage: 2 MG/KG, DAILY
     Route: 042
  17. PREDNISONE [Suspect]
     Active Substance: PREDNISONE
     Dosage: 1 MG/KG, DAILY
     Route: 042
  18. PREDNISONE [Suspect]
     Active Substance: PREDNISONE
     Dosage: UNK
     Route: 048

REACTIONS (6)
  - Bacterial translocation [Recovered/Resolved]
  - Septic shock [Recovered/Resolved]
  - Epstein-Barr virus infection [Recovered/Resolved]
  - Enterovirus infection [Unknown]
  - Rhinovirus infection [Unknown]
  - Epstein-Barr virus associated lymphoproliferative disorder [Recovered/Resolved]

NARRATIVE: CASE EVENT DATE: 20170101
